FAERS Safety Report 6738895-9 (Version None)
Quarter: 2010Q2

REPORT INFORMATION
  Report Type: 
  Country: None (occurrence: None)
  Receive Date: 20100521
  Receipt Date: 20100510
  Transmission Date: 20101027
  Serious: Yes (Hospitalization)
  Sender: FDA-Public Use
  Company Number: 2010AL002804

PATIENT
  Age: 42 Year
  Sex: Male

DRUGS (2)
  1. DICLOFENAC SODIUM [Suspect]
     Indication: BACK PAIN
     Dosage: 50 MG TID PO
     Route: 048
     Dates: start: 20100330, end: 20100422
  2. TRAMADOL HCL [Concomitant]

REACTIONS (7)
  - ABDOMINAL DISCOMFORT [None]
  - ABDOMINAL TENDERNESS [None]
  - DIZZINESS [None]
  - FALL [None]
  - GASTRIC ULCER [None]
  - PEPTIC ULCER [None]
  - PRESYNCOPE [None]
